FAERS Safety Report 11316009 (Version 1)
Quarter: 2015Q3

REPORT INFORMATION
  Report Type: Spontaneous
  Country: FR (occurrence: None)
  Receive Date: 20150724
  Receipt Date: 20150724
  Transmission Date: 20151125
  Serious: Yes (Hospitalization)
  Sender: FDA-Public Use
  Company Number: CO-UX-FR-2015-019

PATIENT
  Age: 83 Year
  Sex: Male

DRUGS (5)
  1. OXACILLIN (UNKNOWN) (OXACILLIN) [Suspect]
     Active Substance: OXACILLIN SODIUM
     Indication: ENDOCARDITIS
     Dosage: INTRAVENOUS (NOT OTHERWISE SPECIFIED)
     Route: 042
     Dates: start: 20150616, end: 20150624
  2. XATRAL [Suspect]
     Active Substance: ALFUZOSIN
     Indication: BENIGN PROSTATIC HYPERPLASIA
     Route: 048
     Dates: start: 20150624
  3. CLOXACILLIN (UNKNOWN) (CLOXACILLIN) [Suspect]
     Active Substance: CLOXACILLIN
     Indication: ENDOCARDITIS
     Dosage: INTRAVENOUS (NOT OTHERWISE SPECIFIED)
     Route: 042
     Dates: start: 20150624, end: 20150703
  4. CALCIPARINE [Suspect]
     Active Substance: HEPARIN CALCIUM
     Route: 058
     Dates: start: 20150611, end: 20150627
  5. ATARAX [Suspect]
     Active Substance: HYDROXYZINE\HYDROXYZINE HYDROCHLORIDE
     Route: 048
     Dates: start: 20150624

REACTIONS (6)
  - Thrombocytopenia [None]
  - Glomerular filtration rate decreased [None]
  - Blood creatinine increased [None]
  - Anaemia [None]
  - Creatinine renal clearance decreased [None]
  - Neutropenia [None]

NARRATIVE: CASE EVENT DATE: 20150627
